FAERS Safety Report 11281128 (Version 2)
Quarter: 2015Q3

REPORT INFORMATION
  Report Type: Spontaneous
  Country: BR (occurrence: BR)
  Receive Date: 20150717
  Receipt Date: 20150806
  Transmission Date: 20151125
  Serious: Yes (Other)
  Sender: FDA-Public Use
  Company Number: BR-GLAXOSMITHKLINE-BR2015GSK101019

PATIENT
  Sex: Female

DRUGS (1)
  1. NIQUITIN [Suspect]
     Active Substance: NICOTINE
     Indication: SMOKING CESSATION THERAPY
     Dosage: UNK
     Route: 065

REACTIONS (8)
  - Skin disorder [Unknown]
  - Irritability [Unknown]
  - Pruritus [Unknown]
  - Hypersensitivity [Unknown]
  - Depressed mood [Unknown]
  - Suicidal ideation [Unknown]
  - Drug ineffective [Unknown]
  - Crying [Unknown]
